FAERS Safety Report 11033117 (Version 2)
Quarter: 2015Q2

REPORT INFORMATION
  Report Type: Spontaneous
  Country: US (occurrence: US)
  Receive Date: 20150415
  Receipt Date: 20150525
  Transmission Date: 20150821
  Serious: No
  Sender: FDA-Public Use
  Company Number: US-JNJFOC-20150205616

PATIENT
  Age: 82 Year
  Sex: Male
  Weight: 77.11 kg

DRUGS (6)
  1. TOPROL XL [Concomitant]
     Active Substance: METOPROLOL SUCCINATE
     Indication: BLOOD PRESSURE
     Route: 048
     Dates: start: 2015
  2. XARELTO [Suspect]
     Active Substance: RIVAROXABAN
     Indication: THROMBOSIS PROPHYLAXIS
     Route: 048
     Dates: start: 20150129
  3. HUMULIN N [Concomitant]
     Active Substance: INSULIN HUMAN
     Indication: BLOOD PRESSURE
     Dosage: 18 OR 20 UNITS SOLUTION
     Route: 058
     Dates: end: 2015
  4. HUMULIN N [Concomitant]
     Active Substance: INSULIN HUMAN
     Indication: BLOOD PRESSURE
     Dosage: 26 UNITS SOLUTION
     Route: 058
     Dates: start: 201502
  5. ASPIRIN. [Suspect]
     Active Substance: ASPIRIN
     Indication: MYOCARDIAL INFARCTION
     Route: 048
  6. ASPIRIN. [Suspect]
     Active Substance: ASPIRIN
     Indication: CEREBROVASCULAR ACCIDENT PROPHYLAXIS
     Route: 048

REACTIONS (4)
  - Malaise [Not Recovered/Not Resolved]
  - Blood glucose increased [Not Recovered/Not Resolved]
  - Epistaxis [Recovered/Resolved]
  - Fatigue [Not Recovered/Not Resolved]

NARRATIVE: CASE EVENT DATE: 201501
